FAERS Safety Report 11938485 (Version 2)
Quarter: 2016Q1

REPORT INFORMATION
  Report Type: Spontaneous
  Country: US (occurrence: US)
  Receive Date: 20160122
  Receipt Date: 20160224
  Transmission Date: 20160526
  Serious: No
  Sender: FDA-Public Use
  Company Number: US-PFIZER INC-2016006922

PATIENT
  Sex: Female

DRUGS (1)
  1. XALKORI [Suspect]
     Active Substance: CRIZOTINIB
     Indication: NON-SMALL CELL LUNG CANCER
     Dosage: 250 MG, 2X/DAY

REACTIONS (4)
  - Dehydration [Recovered/Resolved]
  - Dizziness [Recovered/Resolved]
  - Upper respiratory tract infection [Recovered/Resolved]
  - Vision blurred [Recovered/Resolved]
